FAERS Safety Report 4668266-0 (Version None)
Quarter: 2005Q2

REPORT INFORMATION
  Report Type: 
  Country: None (occurrence: None)
  Receive Date: 20050523
  Receipt Date: 20040105
  Transmission Date: 20051028
  Serious: Yes (Disabling)
  Sender: FDA-Public Use
  Company Number: PHEH2004US00543

PATIENT
  Age: 80 Year
  Sex: Female

DRUGS (7)
  1. AREDIA [Suspect]
     Indication: HYPERCALCAEMIA OF MALIGNANCY
  2. DECADRON [Concomitant]
  3. CHLORHEXIDINE [Concomitant]
  4. ATENOLOL [Concomitant]
  5. EPOGEN [Concomitant]
  6. CAPECITABINE [Concomitant]
  7. ZOMETA [Suspect]
     Indication: HYPERCALCAEMIA OF MALIGNANCY
     Route: 042

REACTIONS (1)
  - ASEPTIC NECROSIS BONE [None]
